FAERS Safety Report 20460156 (Version 1)
Quarter: 2022Q1

REPORT INFORMATION
  Report Type: Spontaneous
  Country: US (occurrence: US)
  Receive Date: 20220211
  Receipt Date: 20220211
  Transmission Date: 20220423
  Serious: Yes (Hospitalization, Other)
  Sender: FDA-Public Use
  Company Number: US-AMGEN-USASP2022018854

PATIENT
  Age: 77 Year
  Sex: Female

DRUGS (2)
  1. PROLIA [Suspect]
     Active Substance: DENOSUMAB
     Indication: Osteoporosis postmenopausal
     Dosage: 60 MILLIGRAM, Q6MO
     Route: 065
     Dates: start: 20180622
  2. COVID-19 VACCINE [Concomitant]
     Indication: COVID-19
     Dosage: UNK
     Dates: end: 20210330

REACTIONS (6)
  - Volvulus [Unknown]
  - COVID-19 [Unknown]
  - Skin disorder [Unknown]
  - Muscle disorder [Unknown]
  - Urinary tract infection [Unknown]
  - Bone pain [Unknown]

NARRATIVE: CASE EVENT DATE: 20200101
